FAERS Safety Report 20205539 (Version 1)
Quarter: 2021Q4

REPORT INFORMATION
  Report Type: Spontaneous
  Country: SE (occurrence: SE)
  Receive Date: 20211220
  Receipt Date: 20211220
  Transmission Date: 20220304
  Serious: Yes (Hospitalization)
  Sender: FDA-Public Use
  Company Number: None

PATIENT
  Age: 74 Year
  Sex: Female

DRUGS (2)
  1. AFINITOR [Suspect]
     Active Substance: EVEROLIMUS
     Indication: Breast cancer metastatic
     Dosage: UNK
     Route: 065
     Dates: start: 20210622, end: 20210810
  2. EXEMESTANE [Concomitant]
     Active Substance: EXEMESTANE
     Indication: Product used for unknown indication
     Dosage: UNK
     Route: 065
     Dates: start: 20210611, end: 20210916

REACTIONS (23)
  - Oral fungal infection [Unknown]
  - Red blood cell sedimentation rate increased [Unknown]
  - Dysphonia [Unknown]
  - Hypoalbuminaemia [Unknown]
  - Joint swelling [Unknown]
  - Muscle spasms [Unknown]
  - Pneumonitis [Unknown]
  - Rhinorrhoea [Unknown]
  - Pain in extremity [Unknown]
  - Faeces discoloured [Unknown]
  - Oxygen saturation decreased [Unknown]
  - Pulmonary pain [Unknown]
  - Urinary tract infection [Unknown]
  - Throat irritation [Unknown]
  - Abdominal pain [Unknown]
  - Pyrexia [Unknown]
  - Hypertension [Unknown]
  - Diarrhoea [Unknown]
  - Headache [Unknown]
  - Dyspnoea [Unknown]
  - Cough [Unknown]
  - Erythema [Unknown]
  - Rash [Unknown]

NARRATIVE: CASE EVENT DATE: 20210622
